FAERS Safety Report 20994272 (Version 1)
Quarter: 2022Q2

REPORT INFORMATION
  Report Type: Spontaneous
  Country: FR (occurrence: FR)
  Receive Date: 20220622
  Receipt Date: 20220622
  Transmission Date: 20220721
  Serious: Yes (Hospitalization, Other)
  Sender: FDA-Public Use
  Company Number: None

PATIENT
  Age: 5 Year
  Sex: Female
  Weight: 21 kg

DRUGS (2)
  1. VANCOMYCIN [Suspect]
     Active Substance: VANCOMYCIN
     Indication: Antibiotic therapy
     Dosage: UNK
     Route: 041
     Dates: start: 20220526, end: 20220527
  2. VANCOMYCIN [Suspect]
     Active Substance: VANCOMYCIN
     Dosage: 5250 MILLIGRAM, TOTAL
     Route: 041
     Dates: start: 20220527, end: 20220527

REACTIONS (4)
  - Acute kidney injury [Not Recovered/Not Resolved]
  - Accidental overdose [Recovering/Resolving]
  - Product prescribing error [Recovered/Resolved]
  - Dose calculation error [Recovered/Resolved]

NARRATIVE: CASE EVENT DATE: 20220526
